FAERS Safety Report 7183371-5 (Version None)
Quarter: 2010Q4

REPORT INFORMATION
  Report Type: 
  Country: None (occurrence: None)
  Receive Date: 20101220
  Receipt Date: 20101220
  Transmission Date: 20110411
  Serious: Yes (Hospitalization)
  Sender: FDA-Public Use
  Company Number: None

PATIENT
  Age: 86 Year
  Sex: Female
  Weight: 115 kg

DRUGS (19)
  1. COUMADIN [Suspect]
     Indication: HIP FRACTURE
     Dosage: PO RECENT
     Route: 048
  2. LIBRIUM [Concomitant]
  3. PREVACID [Concomitant]
  4. VIT E [Concomitant]
  5. VIT C [Concomitant]
  6. CEROVITE [Concomitant]
  7. FERROUS SULFATE [Concomitant]
  8. CARAFATE [Concomitant]
  9. LEVAQUIN [Concomitant]
  10. MUCINEX [Concomitant]
  11. SENNAS [Concomitant]
  12. VASOTEC [Concomitant]
  13. NIFEDIPINE [Concomitant]
  14. GAS X [Concomitant]
  15. ULTRAM [Concomitant]
  16. TYLENOL [Concomitant]
  17. COLACE [Concomitant]
  18. SKELAXIN [Concomitant]
  19. ALBUTEROL [Concomitant]

REACTIONS (4)
  - HAEMATOCHEZIA [None]
  - HAEMATOCRIT DECREASED [None]
  - HAEMOGLOBIN DECREASED [None]
  - MELAENA [None]
